FAERS Safety Report 4850667-9 (Version None)
Quarter: 2005Q4

REPORT INFORMATION
  Report Type: 
  Country: None (occurrence: None)
  Receive Date: 20051212
  Receipt Date: 20050628
  Transmission Date: 20060501
  Serious: Yes (Death, Hospitalization, Other)
  Sender: FDA-Public Use
  Company Number: PHBS2005BR09243

PATIENT
  Age: 83 Year
  Sex: Female

DRUGS (6)
  1. FLORINEF [Concomitant]
  2. PROLOPA [Concomitant]
  3. MANTADAN [Concomitant]
  4. ESPIRONOLACTONA [Concomitant]
  5. COMTAN [Suspect]
     Indication: PARKINSON'S DISEASE
     Dosage: 200 MG/D
     Dates: start: 20050501
  6. LORAX [Concomitant]

REACTIONS (17)
  - ABNORMAL BEHAVIOUR [None]
  - BLOOD DISORDER [None]
  - CONDITION AGGRAVATED [None]
  - CONFUSIONAL STATE [None]
  - DEMENTIA [None]
  - DIARRHOEA [None]
  - DISABILITY [None]
  - HALLUCINATION [None]
  - MEMORY IMPAIRMENT [None]
  - MULTI-ORGAN FAILURE [None]
  - NAUSEA [None]
  - PARKINSON'S DISEASE [None]
  - PNEUMONIA [None]
  - PSYCHOMOTOR HYPERACTIVITY [None]
  - SEVERE ACUTE RESPIRATORY SYNDROME [None]
  - THINKING ABNORMAL [None]
  - TREMOR [None]
